FAERS Safety Report 7023674-8 (Version None)
Quarter: 2010Q3

REPORT INFORMATION
  Report Type: 
  Country: None (occurrence: None)
  Receive Date: 20100929
  Receipt Date: 20100929
  Transmission Date: 20110219
  Serious: Yes (Hospitalization, Other)
  Sender: FDA-Public Use
  Company Number: None

PATIENT
  Age: 48 Year
  Sex: Male
  Weight: 74 kg

DRUGS (1)
  1. MEGESTROL ACETATE [Suspect]
     Dosage: 20 MG EVERY DAY PO
     Route: 048
     Dates: start: 20100722, end: 20100913

REACTIONS (1)
  - PULMONARY EMBOLISM [None]
